FAERS Safety Report 4602900-6 (Version None)
Quarter: 2005Q1

REPORT INFORMATION
  Report Type: 
  Country: None (occurrence: None)
  Receive Date: 20050309
  Receipt Date: 20050228
  Transmission Date: 20050727
  Serious: Yes (Other)
  Sender: FDA-Public Use
  Company Number: CH-GLAXOSMITHKLINE-B0373750A

PATIENT
  Sex: Male

DRUGS (6)
  1. AVANDIA [Suspect]
     Indication: DIABETES MELLITUS
     Dosage: 4MG PER DAY
     Route: 048
  2. SORTIS [Concomitant]
     Route: 048
  3. METFORMIN [Concomitant]
     Dosage: 850MG PER DAY
     Route: 048
  4. AMARYL [Concomitant]
     Route: 048
  5. COZAAR [Concomitant]
     Route: 048
  6. ASPIRIN [Concomitant]
     Dosage: 100MG PER DAY
     Route: 048

REACTIONS (1)
  - HEPATIC CIRRHOSIS [None]
